FAERS Safety Report 5706758-3 (Version None)
Quarter: 2008Q2

REPORT INFORMATION
  Report Type: 
  Country: None (occurrence: None)
  Receive Date: 20080415
  Receipt Date: 20080415
  Transmission Date: 20081010
  Serious: Yes (Other)
  Sender: FDA-Public Use
  Company Number: None

PATIENT
  Sex: Female
  Weight: 81.6475 kg

DRUGS (1)
  1. ZYRTEC [Suspect]
     Indication: HYPERSENSITIVITY
     Dosage: 5 MG 1X PO
     Route: 048
     Dates: start: 20061201, end: 20080407

REACTIONS (5)
  - ERYTHEMA [None]
  - PRURITUS [None]
  - SCRATCH [None]
  - SKIN HAEMORRHAGE [None]
  - URTICARIA [None]
